FAERS Safety Report 18703833 (Version 1)
Quarter: 2021Q1

REPORT INFORMATION
  Report Type: Spontaneous
  Country: CN (occurrence: CN)
  Receive Date: 20210106
  Receipt Date: 20210106
  Transmission Date: 20210419
  Serious: Yes (Hospitalization, Other)
  Sender: FDA-Public Use
  Company Number: CN-JNJFOC-20210102169

PATIENT
  Age: 85 Year
  Sex: Male

DRUGS (3)
  1. XUE SHUAN TONG [Interacting]
     Active Substance: HERBALS\PANAX NOTOGINSENG ROOT EXTRACT
     Indication: ANTICOAGULANT THERAPY
     Dosage: 0.4 G, QD
     Route: 041
     Dates: start: 20201216, end: 20201216
  2. XARELTO [Interacting]
     Active Substance: RIVAROXABAN
     Dosage: 15 MG, QD
     Route: 048
     Dates: start: 20201223, end: 20201224
  3. XARELTO [Suspect]
     Active Substance: RIVAROXABAN
     Indication: ATRIAL FIBRILLATION
     Dosage: 10 MG, QD
     Route: 048
     Dates: start: 20191201, end: 20201216

REACTIONS (8)
  - Oedema peripheral [Unknown]
  - Skin ulcer [Unknown]
  - Infusion site haemorrhage [Recovered/Resolved]
  - Epistaxis [Recovered/Resolved]
  - Product monitoring error [Unknown]
  - Off label use [Unknown]
  - Labelled drug-drug interaction medication error [Unknown]
  - Contraindicated product administered [Unknown]

NARRATIVE: CASE EVENT DATE: 2019
